FAERS Safety Report 8938071 (Version 2)
Quarter: 2012Q4

REPORT INFORMATION
  Report Type: 
  Country: US (occurrence: US)
  Receive Date: 20121126
  Receipt Date: 20121212
  Transmission Date: 20130627
  Serious: Yes (Death)
  Sender: FDA-Public Use
  Company Number: US-ASTELLAS-1101590

PATIENT
  Sex: Male

DRUGS (1)
  1. TARCEVA [Suspect]
     Indication: MALIGNANT RESPIRATORY TRACT NEOPLASM
     Route: 065
     Dates: start: 200605, end: 200606

REACTIONS (4)
  - Death [Fatal]
  - Dermatitis acneiform [Recovered/Resolved]
  - Diarrhoea [Unknown]
  - Nausea [Unknown]
